FAERS Safety Report 20496255 (Version 1)
Quarter: 2022Q1

REPORT INFORMATION
  Report Type: Spontaneous
  Country: US (occurrence: US)
  Receive Date: 20220221
  Receipt Date: 20220221
  Transmission Date: 20220423
  Serious: Yes (Death)
  Sender: FDA-Public Use
  Company Number: US-ADAMAS PHARMA, LLC-2022ADA00331

PATIENT
  Age: 69 Year
  Sex: Female

DRUGS (6)
  1. GOCOVRI [Suspect]
     Active Substance: AMANTADINE
     Indication: Dyskinesia
     Dosage: 274 MG, 1X/DAY AT BEDTIME
     Route: 048
     Dates: start: 20180517
  2. CALCIUM [Concomitant]
     Active Substance: CALCIUM
  3. CARBIDOPA\LEVODOPA [Concomitant]
     Active Substance: CARBIDOPA\LEVODOPA
  4. CRANBERRY [Concomitant]
     Active Substance: CRANBERRY
  5. ENTACAPONE [Concomitant]
     Active Substance: ENTACAPONE
  6. ZYRTEC [Concomitant]
     Active Substance: CETIRIZINE HYDROCHLORIDE

REACTIONS (1)
  - Death [Fatal]

NARRATIVE: CASE EVENT DATE: 20220203
